FAERS Safety Report 9664756 (Version 1)
Quarter: 2013Q4

REPORT INFORMATION
  Report Type: Spontaneous
  Country: JP (occurrence: None)
  Receive Date: 20131031
  Receipt Date: 20131031
  Transmission Date: 20140711
  Serious: Yes (Other)
  Sender: FDA-Public Use
  Company Number: FK201304783

PATIENT
  Age: 65 Year
  Sex: Female

DRUGS (8)
  1. DOXORUBICIN [Suspect]
     Indication: DIFFUSE LARGE B-CELL LYMPHOMA
  2. CYCLOPHOSPHAMIDE (MANUFACTURER UNKNOWN) (CYCLOPHOSPHAMIDE) (CYCLOPHOSPHAMIDE) [Suspect]
     Indication: DIFFUSE LARGE B-CELL LYMPHOMA
  3. DACTINOMYCIN (DACTINOMYCIN) [Concomitant]
  4. GRANULOCYTE COLONY-STIMULATING FACTOR NOS [Concomitant]
  5. IFOSFAMIDE (IFOSFAMIDE) [Concomitant]
  6. ETOPOSIDE (ETOPOSIDE) [Concomitant]
  7. VINCRISTINE (VINCRISTINE) (VINCRISTINE) [Concomitant]
     Indication: DIFFUSE LARGE B-CELL LYMPHOMA
  8. PREDNISOLONE (PREDNISOLONE) (PREDNISOLONE) [Concomitant]
     Indication: DIFFUSE LARGE B-CELL LYMPHOMA

REACTIONS (1)
  - Ewing^s sarcoma [None]
